FAERS Safety Report 6870853-6 (Version None)
Quarter: 2010Q3

REPORT INFORMATION
  Report Type: 
  Country: None (occurrence: None)
  Receive Date: 20100721
  Receipt Date: 20100709
  Transmission Date: 20110219
  Serious: Yes (Hospitalization)
  Sender: FDA-Public Use
  Company Number: 2010085657

PATIENT
  Age: 52 Year
  Sex: Male

DRUGS (14)
  1. FRAGMIN [Suspect]
     Dosage: 15000 IU, SUBCUTANEOUS ; 12500 IU, SUBCUTANEOUS
     Route: 058
     Dates: end: 20100519
  2. FRAGMIN [Suspect]
     Dosage: 15000 IU, SUBCUTANEOUS ; 12500 IU, SUBCUTANEOUS
     Route: 058
     Dates: start: 20100407
  3. TRAMADOL HCL [Concomitant]
  4. OPTINATE SEPTIMUM (RISEDRONATE SODIUM) [Concomitant]
  5. SPIRIVA [Concomitant]
  6. KALCIPOS-D (CALCIUM CARBONATE, COLECALCIFEROL) [Concomitant]
  7. OMEPRAZOLE [Concomitant]
  8. PREDNISOLONE [Concomitant]
  9. THEO-DUR  - SLOW RELEASE (THEOPHYLLINE) [Concomitant]
  10. OXASCAND (OXAZEPAM) [Concomitant]
  11. IMOVANE (ZOPICLONE) [Concomitant]
  12. COMBIVENT [Concomitant]
  13. SINGULAIR [Concomitant]
  14. BECLOMETASONE/FORMOTEROL (BECLOMETASONE, FORMOTEROL) [Concomitant]

REACTIONS (3)
  - HEPATITIS TOXIC [None]
  - THROMBOPHLEBITIS [None]
  - THROMBOSIS [None]
